FAERS Safety Report 10937549 (Version 2)
Quarter: 2015Q2

REPORT INFORMATION
  Report Type: Spontaneous
  Country: US (occurrence: US)
  Receive Date: 20150321
  Receipt Date: 20150525
  Transmission Date: 20150821
  Serious: No
  Sender: FDA-Public Use
  Company Number: US-JNJFOC-20130807848

PATIENT
  Age: 70 Year
  Sex: Male

DRUGS (9)
  1. STELARA [Suspect]
     Active Substance: USTEKINUMAB
     Indication: PRODUCT USED FOR UNKNOWN INDICATION
     Dosage: 11 SHOTS
     Route: 058
  2. STELARA [Suspect]
     Active Substance: USTEKINUMAB
     Indication: PRODUCT USED FOR UNKNOWN INDICATION
     Route: 058
  3. HALOPERIDOL. [Concomitant]
     Active Substance: HALOPERIDOL
     Route: 065
  4. RITALIN [Concomitant]
     Active Substance: METHYLPHENIDATE HYDROCHLORIDE
     Route: 065
  5. LISINOPRIL. [Concomitant]
     Active Substance: LISINOPRIL
  6. BENZTROPINE [Concomitant]
     Active Substance: BENZTROPINE
  7. LEXAPRO [Concomitant]
     Active Substance: ESCITALOPRAM OXALATE
     Route: 065
  8. AMLODIPINE [Concomitant]
     Active Substance: AMLODIPINE BESYLATE
  9. LIPITOR [Concomitant]
     Active Substance: ATORVASTATIN CALCIUM
     Route: 065

REACTIONS (2)
  - Herpes zoster [Unknown]
  - Weight increased [Unknown]

NARRATIVE: CASE EVENT DATE: 201308
